FAERS Safety Report 25314979 (Version 2)
Quarter: 2025Q3

REPORT INFORMATION
  Report Type: Spontaneous
  Country: US (occurrence: US)
  Receive Date: 20250514
  Receipt Date: 20250830
  Transmission Date: 20251021
  Serious: No
  Sender: SANOFI AVENTIS
  Company Number: US-SA-2025SA137021

PATIENT
  Age: 81 Year
  Sex: Female

DRUGS (7)
  1. DUPIXENT [Suspect]
     Active Substance: DUPILUMAB
     Indication: Chronic obstructive pulmonary disease
     Dosage: 300 MG, QOW
     Route: 058
  2. DUPIXENT [Suspect]
     Active Substance: DUPILUMAB
     Indication: Emphysema
  3. DUPIXENT [Suspect]
     Active Substance: DUPILUMAB
     Indication: Bronchitis chronic
  4. SODIUM CHLORIDE [Concomitant]
     Active Substance: SODIUM CHLORIDE
  5. PULMICORT TURBUHALER [Concomitant]
     Active Substance: BUDESONIDE
  6. ARFORMOTEROL TARTRATE [Concomitant]
     Active Substance: ARFORMOTEROL TARTRATE
  7. ALBUTEROL SULFATE [Concomitant]
     Active Substance: ALBUTEROL SULFATE

REACTIONS (4)
  - Viral infection [Unknown]
  - Nasopharyngitis [Unknown]
  - Drug ineffective [Unknown]
  - Off label use [Unknown]
